FAERS Safety Report 25176743 (Version 1)
Quarter: 2025Q2

REPORT INFORMATION
  Report Type: Spontaneous
  Country: ES (occurrence: ES)
  Receive Date: 20250409
  Receipt Date: 20250409
  Transmission Date: 20250717
  Serious: Yes (Life-Threatening, Hospitalization)
  Sender: BAUSCH AND LOMB
  Company Number: None

PATIENT
  Age: 45 Year
  Sex: Male

DRUGS (1)
  1. BRODALUMAB [Suspect]
     Active Substance: BRODALUMAB
     Indication: Psoriasis
     Dosage: KYNTHEUM 210 MG SOLUTION FOR INJECTION IN PRE-FILLED SYRINGE, 2 PRE-FILLED SYRINGES OF 1.5 ML
     Route: 058
     Dates: start: 20240807, end: 20250321

REACTIONS (2)
  - Myasthenia gravis [Not Recovered/Not Resolved]
  - Product use issue [Unknown]

NARRATIVE: CASE EVENT DATE: 20250228
